FAERS Safety Report 5525339-8 (Version None)
Quarter: 2007Q4

REPORT INFORMATION
  Report Type: 
  Country: None (occurrence: None)
  Receive Date: 20071119
  Receipt Date: 20071112
  Transmission Date: 20080405
  Serious: Yes (Hospitalization, Other)
  Sender: FDA-Public Use
  Company Number: 2007SP019558

PATIENT
  Age: 67 Year
  Sex: Female
  Weight: 69 kg

DRUGS (3)
  1. TEMOZOLOMIDE [Suspect]
     Indication: GLIOBLASTOMA
     Dosage: 100 MG/KG;, 100 MG/KG;
     Dates: start: 20070301, end: 20070401
  2. TEMOZOLOMIDE [Suspect]
     Indication: GLIOBLASTOMA
     Dosage: 100 MG/KG;, 100 MG/KG;
     Dates: start: 20070501, end: 20070601
  3. DEXAMETHASONE [Suspect]
     Indication: GLIOBLASTOMA
     Dosage: 3 MG; QD; PO
     Route: 048
     Dates: start: 20070301

REACTIONS (12)
  - ALOPECIA [None]
  - DEEP VEIN THROMBOSIS [None]
  - DIABETES MELLITUS [None]
  - ORAL CANDIDIASIS [None]
  - PNEUMOCYSTIS JIROVECI PNEUMONIA [None]
  - PNEUMONIA [None]
  - PULMONARY EMBOLISM [None]
  - PULMONARY INFARCTION [None]
  - RED BLOOD CELL COUNT DECREASED [None]
  - SINUSITIS [None]
  - THROMBOCYTOPENIA [None]
  - URINARY TRACT INFECTION [None]
